FAERS Safety Report 19873411 (Version 1)
Quarter: 2021Q3

REPORT INFORMATION
  Report Type: Spontaneous
  Country: US (occurrence: US)
  Receive Date: 20210922
  Receipt Date: 20210922
  Transmission Date: 20211014
  Serious: Yes (Other)
  Sender: FDA-Public Use
  Company Number: US-ALLERGAN-2132439US

PATIENT
  Sex: Female
  Weight: 83.9 kg

DRUGS (2)
  1. REFRESH CLASSIC LUBRICANT EYE DROPS [Concomitant]
     Indication: DRY EYE
  2. REFRESH OPTIVE ADVANCED [Suspect]
     Active Substance: CARBOXYMETHYLCELLULOSE SODIUM\GLYCERIN\POLYSORBATE 80
     Indication: DRY EYE
     Dosage: UNK
     Dates: end: 20210913

REACTIONS (5)
  - Heart rate increased [Not Recovered/Not Resolved]
  - Poor quality product administered [Unknown]
  - Product colour issue [Unknown]
  - Eye haemorrhage [Recovered/Resolved]
  - Cataract [Not Recovered/Not Resolved]

NARRATIVE: CASE EVENT DATE: 20210912
